FAERS Safety Report 6689991-6 (Version None)
Quarter: 2010Q2

REPORT INFORMATION
  Report Type: 
  Country: None (occurrence: None)
  Receive Date: 20100421
  Receipt Date: 20100408
  Transmission Date: 20101027
  Serious: Yes (Other)
  Sender: FDA-Public Use
  Company Number: PHHY2010GB23321

PATIENT
  Sex: Female

DRUGS (2)
  1. FEMARA [Suspect]
     Indication: BREAST CANCER
     Dosage: UNK
  2. AREDIA [Suspect]
     Indication: BREAST CANCER
     Dosage: UNK

REACTIONS (2)
  - DECREASED APPETITE [None]
  - PAIN IN JAW [None]
